FAERS Safety Report 7468686-5 (Version None)
Quarter: 2011Q2

REPORT INFORMATION
  Report Type: 
  Country: None (occurrence: None)
  Receive Date: 20110510
  Receipt Date: 20110503
  Transmission Date: 20111010
  Serious: No
  Sender: FDA-Public Use
  Company Number: US-BIOGENIDEC-2010BI021779

PATIENT
  Sex: Female

DRUGS (2)
  1. TYSABRI [Suspect]
     Indication: MULTIPLE SCLEROSIS
     Route: 042
     Dates: start: 20090601
  2. AMPYRA [Concomitant]
     Dates: start: 20100401

REACTIONS (8)
  - HYPOAESTHESIA [None]
  - MULTIPLE SCLEROSIS [None]
  - MUSCULAR WEAKNESS [None]
  - ASTHENIA [None]
  - MOBILITY DECREASED [None]
  - URINARY TRACT INFECTION [None]
  - COORDINATION ABNORMAL [None]
  - MOTOR DYSFUNCTION [None]
